FAERS Safety Report 15049964 (Version 2)
Quarter: 2018Q3

REPORT INFORMATION
  Report Type: Report from Study
  Country: US (occurrence: US)
  Receive Date: 20180622
  Receipt Date: 20180706
  Transmission Date: 20181010
  Serious: Yes (Hospitalization, Other)
  Sender: FDA-Public Use
  Company Number: US-AEGERION PHARMACEUTICAL, INC-AEGR003783

PATIENT
  Age: 42 Year
  Sex: Female
  Weight: 65.76 kg

DRUGS (4)
  1. JUXTAPID [Suspect]
     Active Substance: LOMITAPIDE MESYLATE
     Dosage: 10 MG, QD
     Dates: start: 2018
  2. JUXTAPID [Suspect]
     Active Substance: LOMITAPIDE MESYLATE
     Dosage: 10 MG, QD
     Route: 048
     Dates: start: 20140721, end: 2018
  3. JUXTAPID [Suspect]
     Active Substance: LOMITAPIDE MESYLATE
     Dosage: 5 MG, UNK
     Route: 048
     Dates: start: 201806
  4. JUXTAPID [Suspect]
     Active Substance: LOMITAPIDE MESYLATE
     Indication: TYPE IIA HYPERLIPIDAEMIA
     Dosage: 5 MG, QD
     Route: 048
     Dates: start: 20140721

REACTIONS (11)
  - Inappropriate schedule of drug administration [Unknown]
  - Malaise [Unknown]
  - Therapy cessation [Recovered/Resolved]
  - Functional gastrointestinal disorder [Unknown]
  - Dysphagia [Unknown]
  - Abdominal distension [Unknown]
  - Hiatus hernia [Unknown]
  - Odynophagia [Unknown]
  - Chest discomfort [Unknown]
  - Hepatic steatosis [Unknown]
  - Abnormal faeces [Unknown]

NARRATIVE: CASE EVENT DATE: 2018
